FAERS Safety Report 10735173 (Version 1)
Quarter: 2015Q1

REPORT INFORMATION
  Report Type: Spontaneous
  Country: US (occurrence: US)
  Receive Date: 20150125
  Receipt Date: 20150125
  Transmission Date: 20150721
  Serious: Yes (Death, Hospitalization)
  Sender: FDA-Public Use
  Company Number: US-JNJFOC-20150104626

PATIENT
  Age: 21 Year
  Sex: Female
  Weight: 50.39 kg

DRUGS (2)
  1. TYLENOL [Suspect]
     Active Substance: ACETAMINOPHEN
     Route: 048
  2. TYLENOL [Suspect]
     Active Substance: ACETAMINOPHEN
     Indication: SUICIDE ATTEMPT
     Dosage: FORMULATION: SOLID (TABLET/CAPSULES/CAPLETS)
     Route: 048
     Dates: start: 20050116

REACTIONS (12)
  - Brain death [Fatal]
  - Blood electrolytes abnormal [Unknown]
  - Respiratory arrest [Fatal]
  - Overdose [Fatal]
  - Brain herniation [Fatal]
  - Hypoglycaemia [Unknown]
  - Completed suicide [Fatal]
  - Acidosis [Unknown]
  - Cardiac arrest [Fatal]
  - Anion gap [Unknown]
  - Transaminases increased [Unknown]
  - Renal failure [Unknown]

NARRATIVE: CASE EVENT DATE: 20050116
